FAERS Safety Report 5426290-4 (Version None)
Quarter: 2007Q3

REPORT INFORMATION
  Report Type: 
  Country: None (occurrence: None)
  Receive Date: 20070827
  Receipt Date: 20070822
  Transmission Date: 20080115
  Serious: Yes (Hospitalization, Other)
  Sender: FDA-Public Use
  Company Number: US-PURDUE-USA_2007_0027663

PATIENT
  Sex: Male

DRUGS (14)
  1. OXYCONTIN [Suspect]
     Indication: BACK PAIN
     Dosage: 40 MG, SEE TEXT
     Dates: start: 19990908, end: 20011109
  2. LORCET-HD [Concomitant]
     Dosage: 40 MG, AM
  3. XANAX [Concomitant]
  4. GLUCOTROL [Concomitant]
  5. ACCUPRIL [Concomitant]
  6. HYTRIN [Concomitant]
  7. DILTIAZEM [Concomitant]
  8. VIAGRA [Concomitant]
  9. VIOXX [Concomitant]
  10. REMERON [Concomitant]
  11. ALBUTEROL [Concomitant]
  12. LOPID [Concomitant]
  13. ZIPRASIDONE HCL [Concomitant]
  14. ZYPREXA [Concomitant]

REACTIONS (22)
  - ABDOMINAL PAIN UPPER [None]
  - AMNESIA [None]
  - ANXIETY [None]
  - DELUSION [None]
  - DEPRESSION [None]
  - DIARRHOEA [None]
  - DRUG ABUSER [None]
  - DRUG DEPENDENCE [None]
  - DRUG WITHDRAWAL SYNDROME [None]
  - GENERAL PHYSICAL HEALTH DETERIORATION [None]
  - INSOMNIA [None]
  - MENTAL DISORDER [None]
  - MOOD SWINGS [None]
  - MUSCLE SPASMS [None]
  - PALPITATIONS [None]
  - PANIC ATTACK [None]
  - PARANOIA [None]
  - SEXUAL DYSFUNCTION [None]
  - SUICIDAL IDEATION [None]
  - SUICIDE ATTEMPT [None]
  - TREMOR [None]
  - VOMITING [None]
